FAERS Safety Report 9498909 (Version 2)
Quarter: 2013Q4

REPORT INFORMATION
  Report Type: Spontaneous
  Country: US (occurrence: US)
  Receive Date: 20130904
  Receipt Date: 20131120
  Transmission Date: 20140711
  Serious: Yes (Other)
  Sender: FDA-Public Use
  Company Number: CHPA2013US013574

PATIENT
  Age: 73 Year
  Sex: Female

DRUGS (4)
  1. ASCRIPTIN - UNKNOWN FORMULA [Suspect]
     Indication: THROMBOSIS
     Dosage: 1-2 DF, PRN
     Route: 048
     Dates: start: 2011
  2. ASCRIPTIN - UNKNOWN FORMULA [Suspect]
     Indication: INFLAMMATION
     Dosage: 1-2 DF, PRN
     Route: 048
     Dates: start: 1978
  3. ASCRIPTIN - UNKNOWN FORMULA [Suspect]
     Indication: OFF LABEL USE
  4. TYLENOL [Concomitant]
     Dosage: UNK, PRN

REACTIONS (4)
  - Thrombosis [Recovered/Resolved]
  - Disease recurrence [Recovered/Resolved]
  - Nerve compression [Not Recovered/Not Resolved]
  - Therapeutic response unexpected [Unknown]
